FAERS Safety Report 16573581 (Version 1)
Quarter: 2019Q3

REPORT INFORMATION
  Report Type: Spontaneous
  Country: SE (occurrence: SE)
  Receive Date: 20190715
  Receipt Date: 20190715
  Transmission Date: 20191004
  Serious: Yes (Life-Threatening)
  Sender: FDA-Public Use
  Company Number: SE-TEVA-2019-SE-1077501

PATIENT
  Age: 65 Year
  Sex: Female

DRUGS (1)
  1. DOXYFERM 100 MG TABLETT [Suspect]
     Active Substance: DOXYCYCLINE
     Dosage: 200MG PER DAY
     Dates: start: 20190611, end: 20190613

REACTIONS (1)
  - Anaphylactic shock [Recovered/Resolved]

NARRATIVE: CASE EVENT DATE: 20190613
